FAERS Safety Report 19061426 (Version 1)
Quarter: 2021Q1

REPORT INFORMATION
  Report Type: Spontaneous
  Country: IT (occurrence: IT)
  Receive Date: 20210326
  Receipt Date: 20210326
  Transmission Date: 20210420
  Serious: Yes (Life-Threatening)
  Sender: FDA-Public Use
  Company Number: NVSC2021IT067963

PATIENT
  Age: 34 Year
  Sex: Female

DRUGS (3)
  1. PHENYLEPHRINE [Suspect]
     Active Substance: PHENYLEPHRINE HYDROCHLORIDE
     Indication: INTENTIONAL SELF-INJURY
     Dosage: 50 MG, TOTAL
     Route: 048
  2. DIPHENHYDRAMINE. [Suspect]
     Active Substance: DIPHENHYDRAMINE
     Indication: INTENTIONAL SELF-INJURY
     Dosage: 250 MG, TOTAL
     Route: 048
     Dates: start: 20210313, end: 20210313
  3. PARACETAMOL [Suspect]
     Active Substance: ACETAMINOPHEN
     Indication: INTENTIONAL SELF-INJURY
     Dosage: 5000 MG, TOTAL
     Route: 048
     Dates: start: 20210313, end: 20210313

REACTIONS (4)
  - Sinus arrest [Recovering/Resolving]
  - Bradycardia [Recovering/Resolving]
  - Drug abuse [Recovering/Resolving]
  - Asthenia [Recovering/Resolving]

NARRATIVE: CASE EVENT DATE: 20210313
